FAERS Safety Report 25645817 (Version 2)
Quarter: 2025Q4

REPORT INFORMATION
  Report Type: Spontaneous
  Country: EU (occurrence: EU)
  Receive Date: 20250805
  Receipt Date: 20251013
  Transmission Date: 20260117
  Serious: Yes (Other)
  Sender: PFIZER
  Company Number: EU-AMGEN-BELSP2025143717

PATIENT
  Age: 46 Year
  Sex: Female

DRUGS (3)
  1. BEVACIZUMAB [Suspect]
     Active Substance: BEVACIZUMAB
     Indication: Ovarian cancer stage IV
     Dosage: MAINTENANCE THERAPY FOR OVER THREE YEARS
  2. GEMCITABINE [Concomitant]
     Active Substance: GEMCITABINE
     Indication: Ovarian cancer stage IV
     Dosage: UNK
  3. CISPLATIN [Concomitant]
     Active Substance: CISPLATIN
     Indication: Ovarian cancer stage IV
     Dosage: UNK

REACTIONS (8)
  - Chronic kidney disease [Unknown]
  - Hypertension [Unknown]
  - Concomitant disease aggravated [Unknown]
  - Angina unstable [Unknown]
  - Coronary artery stenosis [Unknown]
  - Myocardial ischaemia [Unknown]
  - Atherosclerotic plaque rupture [Unknown]
  - Coronary artery embolism [Unknown]
